FAERS Safety Report 23671112 (Version 1)
Quarter: 2024Q1

REPORT INFORMATION
  Report Type: Spontaneous
  Country: AU (occurrence: None)
  Receive Date: 20240326
  Receipt Date: 20240326
  Transmission Date: 20240410
  Serious: Yes (Hospitalization)
  Sender: FDA-Public Use
  Company Number: 2024A066139

PATIENT
  Age: 76 Year
  Sex: Female

DRUGS (15)
  1. NEXIUM [Suspect]
     Active Substance: ESOMEPRAZOLE MAGNESIUM
     Indication: Gastrooesophageal reflux disease
     Route: 048
  2. NEXIUM [Suspect]
     Active Substance: ESOMEPRAZOLE MAGNESIUM
     Indication: Gastrooesophageal reflux disease
     Route: 048
     Dates: end: 20240131
  3. HYDROCHLOROTHIAZIDE\IRBESARTAN [Concomitant]
     Active Substance: HYDROCHLOROTHIAZIDE\IRBESARTAN
     Dosage: 300 MG /12.5 MG
  4. BION TEARS [Concomitant]
     Active Substance: DEXTRAN 70\HYPROMELLOSE 2910 (4000 MPA.S)
  5. BIMATOPROST\TIMOLOL [Concomitant]
     Active Substance: BIMATOPROST\TIMOLOL
     Dosage: 0.03% / 0.05% 2 DROPS DAILY
  6. HPMC PAA [Concomitant]
     Dosage: 0.3 % EYE GEL
  7. LERCANIDIPINE [Concomitant]
     Active Substance: LERCANIDIPINE
  8. MOVICOL [Concomitant]
     Active Substance: POLYETHYLENE GLYCOL 3350\POTASSIUM CHLORIDE\SODIUM BICARBONATE\SODIUM CHLORIDE
  9. OPTIFRESH TEARS [Concomitant]
  10. PANADOL [Concomitant]
     Active Substance: ACETAMINOPHEN
     Dosage: 665 MG PRN
  11. XARELTO [Concomitant]
     Active Substance: RIVAROXABAN
  12. SOTALOL [Concomitant]
     Active Substance: SOTALOL
     Dosage: 80 MG 1.5 TABLETS BD
  13. VITAMIN C [Concomitant]
     Active Substance: ASCORBIC ACID
  14. VYTORIN [Concomitant]
     Active Substance: EZETIMIBE\SIMVASTATIN
     Dosage: 10 MG/ 40 MG DAILY
  15. MAGNESIUM [Concomitant]
     Active Substance: MAGNESIUM
     Dosage: 1 AT NIGHT

REACTIONS (11)
  - Blood test abnormal [Recovered/Resolved]
  - Gastrointestinal carcinoma [Unknown]
  - Cognitive disorder [Not Recovered/Not Resolved]
  - Constipation [Not Recovered/Not Resolved]
  - Diarrhoea [Not Recovered/Not Resolved]
  - Dry eye [Not Recovered/Not Resolved]
  - Dry mouth [Not Recovered/Not Resolved]
  - Fatigue [Not Recovered/Not Resolved]
  - Saliva altered [Not Recovered/Not Resolved]
  - Tracheal stenosis [Not Recovered/Not Resolved]
  - Visual impairment [Not Recovered/Not Resolved]

NARRATIVE: CASE EVENT DATE: 20220201
